FAERS Safety Report 5816606-9 (Version None)
Quarter: 2008Q3

REPORT INFORMATION
  Report Type: 
  Country: None (occurrence: None)
  Receive Date: 20080717
  Receipt Date: 20080313
  Transmission Date: 20090109
  Serious: Yes (Hospitalization, Other)
  Sender: FDA-Public Use
  Company Number: 2008SP005172

PATIENT
  Age: 66 Year
  Sex: Female

DRUGS (8)
  1. INTEGRILIN [Suspect]
     Indication: DRUG USE FOR UNKNOWN INDICATION
     Dosage: INBO ; INDRP
     Dates: start: 20080103, end: 20080103
  2. INTEGRILIN [Suspect]
     Indication: DRUG USE FOR UNKNOWN INDICATION
     Dosage: INBO ; INDRP
     Dates: start: 20080103
  3. LIPITOR [Concomitant]
  4. SODIUM CHLORIDE [Concomitant]
  5. NITROGLYCERIN [Concomitant]
  6. HEPARIN [Concomitant]
  7. ASPIRIN [Concomitant]
  8. PLAVIX [Concomitant]

REACTIONS (2)
  - CEREBRAL INFARCTION [None]
  - SUBARACHNOID HAEMORRHAGE [None]
